FAERS Safety Report 23021790 (Version 2)
Quarter: 2023Q4

REPORT INFORMATION
  Report Type: Spontaneous
  Country: CN (occurrence: CN)
  Receive Date: 20231003
  Receipt Date: 20231004
  Transmission Date: 20240109
  Serious: Yes (Hospitalization)
  Sender: FDA-Public Use
  Company Number: CN-FreseniusKabi-FK202315183

PATIENT
  Age: 67 Year
  Sex: Male
  Weight: 65 kg

DRUGS (1)
  1. KABIVEN [Suspect]
     Active Substance: AMINO ACIDS\ANHYDROUS DEXTROSE\CALCIUM CHLORIDE\MAGNESIUM SULFATE HEPTAHYDRATE\POTASSIUM CHLORIDE\SO
     Indication: Nutritional supplementation
     Route: 041
     Dates: start: 20230911, end: 20230914

REACTIONS (2)
  - Pyrexia [Recovering/Resolving]
  - Chills [Recovering/Resolving]

NARRATIVE: CASE EVENT DATE: 20230914
